FAERS Safety Report 8601943-5 (Version None)
Quarter: 2012Q3

REPORT INFORMATION
  Report Type: 
  Country: None (occurrence: None)
  Receive Date: 20120817
  Receipt Date: 20120605
  Transmission Date: 20120928
  Serious: Yes (Hospitalization)
  Sender: FDA-Public Use
  Company Number: US-BRISTOL-MYERS SQUIBB COMPANY-16664294

PATIENT

DRUGS (1)
  1. SPRYCEL [Suspect]
     Dosage: STARTED AT 100MG, REDUCED TO 50MG AND STOPPED.

REACTIONS (2)
  - PLEURAL EFFUSION [None]
  - CARDIAC FAILURE CONGESTIVE [None]
